FAERS Safety Report 18007138 (Version 1)
Quarter: 2020Q3

REPORT INFORMATION
  Report Type: Other
  Country: FR (occurrence: FR)
  Receive Date: 20200710
  Receipt Date: 20200710
  Transmission Date: 20201103
  Serious: Yes (Hospitalization)
  Sender: FDA-Public Use
  Company Number: FR-APOTEX-2020AP013494

PATIENT
  Age: 64 Year
  Sex: Female

DRUGS (4)
  1. KARDEGIC [Suspect]
     Active Substance: ASPIRIN DL-LYSINE
     Indication: PROPHYLAXIS
     Dosage: 160 MILLIGRAM, QD (THE MORNING)
     Route: 048
     Dates: start: 2018
  2. PANTOPRAZOLE [Suspect]
     Active Substance: PANTOPRAZOLE
     Indication: PROPHYLAXIS
     Dosage: 40 MILLIGRAM, QD
     Route: 048
     Dates: start: 2017
  3. PAROXETINE HYDROCHLORIDE. [Suspect]
     Active Substance: PAROXETINE HYDROCHLORIDE
     Indication: ANXIETY
     Dosage: 20 MILLIGRAM, QD
     Route: 048
  4. VERSATIS [Suspect]
     Active Substance: LIDOCAINE
     Indication: PAIN
     Dosage: 1 DOSAGE FORM, QD, AS NECESSARY
     Route: 062
     Dates: start: 2018

REACTIONS (1)
  - Pruritus [Not Recovered/Not Resolved]

NARRATIVE: CASE EVENT DATE: 201902
